APPROVED DRUG PRODUCT: NEVIRAPINE
Active Ingredient: NEVIRAPINE
Strength: 200MG
Dosage Form/Route: TABLET;ORAL
Application: A203176 | Product #001
Applicant: TECHNOLOGY ORGANIZED LLC
Approved: May 22, 2012 | RLD: No | RS: No | Type: DISCN